FAERS Safety Report 5874742-5 (Version None)
Quarter: 2008Q3

REPORT INFORMATION
  Report Type: 
  Country: None (occurrence: None)
  Receive Date: 20080909
  Receipt Date: 20080909
  Transmission Date: 20090109
  Serious: Yes (Death, Hospitalization, Other)
  Sender: FDA-Public Use
  Company Number: None

PATIENT
  Sex: Male
  Weight: 81.6475 kg

DRUGS (2)
  1. HEPARIN [Suspect]
     Indication: POSTOPERATIVE THROMBOSIS
     Dates: start: 20080501, end: 20080721
  2. PLAVIX [Suspect]
     Indication: POSTOPERATIVE THROMBOSIS
     Dates: start: 20080601, end: 20080721

REACTIONS (8)
  - HAEMORRHAGE [None]
  - HEPARIN-INDUCED THROMBOCYTOPENIA [None]
  - MYOCARDIAL INFARCTION [None]
  - PERIPHERAL COLDNESS [None]
  - PYREXIA [None]
  - SIMILAR REACTION ON PREVIOUS EXPOSURE TO DRUG [None]
  - THROMBOSIS [None]
  - ULCER HAEMORRHAGE [None]
